FAERS Safety Report 25813012 (Version 1)
Quarter: 2025Q3

REPORT INFORMATION
  Report Type: Spontaneous
  Country: CA (occurrence: CA)
  Receive Date: 20250917
  Receipt Date: 20250917
  Transmission Date: 20251020
  Serious: Yes (Death, Other)
  Sender: INTERCEPT PHARMACEUTICALS
  Company Number: CA-ADVANZ PHARMA-202209006275

PATIENT
  Age: 58 Year
  Sex: Male

DRUGS (2)
  1. OCALIVA [Suspect]
     Active Substance: OBETICHOLIC ACID
     Indication: Primary biliary cholangitis
     Dosage: 5 MG, QD (OCALIVA)
     Route: 048
     Dates: start: 20211211
  2. URSODIOL [Concomitant]
     Active Substance: URSODIOL
     Dates: start: 2016

REACTIONS (8)
  - Death [Fatal]
  - Functional gastrointestinal disorder [Unknown]
  - Platelet count decreased [Not Recovered/Not Resolved]
  - Gamma-glutamyltransferase abnormal [Unknown]
  - Blood alkaline phosphatase abnormal [Unknown]
  - Treatment delayed [Unknown]
  - Product dose omission issue [Unknown]
  - Product distribution issue [Unknown]

NARRATIVE: CASE EVENT DATE: 20220902
